FAERS Safety Report 21969302 (Version 2)
Quarter: 2023Q1

REPORT INFORMATION
  Report Type: Spontaneous
  Country: US (occurrence: US)
  Receive Date: 20230208
  Receipt Date: 20230217
  Transmission Date: 20230418
  Serious: Yes (Other)
  Sender: FDA-Public Use
  Company Number: US-BRACCO-2023US00373

PATIENT
  Age: 62 Year
  Sex: Female

DRUGS (15)
  1. LUMASON [Suspect]
     Active Substance: SULFUR HEXAFLUORIDE
     Indication: Echocardiogram
     Dosage: 1.5 ML, SINGLE
     Route: 042
     Dates: start: 20230126, end: 20230126
  2. LUMASON [Suspect]
     Active Substance: SULFUR HEXAFLUORIDE
     Indication: Echocardiogram
     Dosage: 1.5 ML, SINGLE
     Route: 042
     Dates: start: 20230126, end: 20230126
  3. LUMASON [Suspect]
     Active Substance: SULFUR HEXAFLUORIDE
     Indication: Echocardiogram
     Dosage: 1.5 ML, SINGLE
     Route: 042
     Dates: start: 20230126, end: 20230126
  4. ALBUTEROL [Concomitant]
     Active Substance: ALBUTEROL
  5. AMANTADINE [Concomitant]
     Active Substance: AMANTADINE
  6. ATORVASTATIN [Concomitant]
     Active Substance: ATORVASTATIN
  7. LEXAPRO [Concomitant]
     Active Substance: ESCITALOPRAM OXALATE
  8. LORAZEPAM [Concomitant]
     Active Substance: LORAZEPAM
  9. METOPROLOL [Concomitant]
     Active Substance: METOPROLOL
  10. NEXIUM I.V. [Concomitant]
     Active Substance: ESOMEPRAZOLE SODIUM
  11. NITROFURANTOIN [Concomitant]
     Active Substance: NITROFURANTOIN
  12. NITROGLYCERIN [Concomitant]
     Active Substance: NITROGLYCERIN
  13. PHENAZOPYRIDINE [Concomitant]
     Active Substance: PHENAZOPYRIDINE
  14. SYMBICORT [Concomitant]
     Active Substance: BUDESONIDE\FORMOTEROL FUMARATE DIHYDRATE
  15. TRIAMCINOLONE ACETONIDE [Concomitant]
     Active Substance: TRIAMCINOLONE ACETONIDE

REACTIONS (11)
  - Loss of consciousness [Recovered/Resolved]
  - Oxygen saturation decreased [Recovered/Resolved]
  - Hypotension [Recovered/Resolved]
  - Incoherent [Recovered/Resolved]
  - Somnolence [Recovered/Resolved]
  - Tremor [Recovered/Resolved]
  - Eye movement disorder [Recovered/Resolved]
  - Agitation [Recovered/Resolved]
  - Crying [Recovered/Resolved]
  - Nausea [Recovered/Resolved]
  - Urinary incontinence [Recovered/Resolved]

NARRATIVE: CASE EVENT DATE: 20230126
